FAERS Safety Report 18169231 (Version 1)
Quarter: 2020Q3

REPORT INFORMATION
  Report Type: Spontaneous
  Country: JP (occurrence: JP)
  Receive Date: 20200818
  Receipt Date: 20200818
  Transmission Date: 20201103
  Serious: Yes (Death)
  Sender: FDA-Public Use
  Company Number: JP-ROCHE-2661530

PATIENT
  Age: 78 Year
  Sex: Female

DRUGS (3)
  1. METHYLPREDNISOLONE. [Concomitant]
     Active Substance: METHYLPREDNISOLONE
     Indication: COVID-19
     Dosage: DOSAGE IS UNCERTAIN.
     Route: 065
     Dates: start: 20200712, end: 20200714
  2. AVIGAN [Concomitant]
     Active Substance: FAVIPIRAVIR
     Indication: COVID-19
     Dates: start: 20200708, end: 20200722
  3. ACTEMRA [Suspect]
     Active Substance: TOCILIZUMAB
     Indication: COVID-19 PNEUMONIA
     Route: 041
     Dates: start: 20200710, end: 20200711

REACTIONS (4)
  - Septic shock [Fatal]
  - COVID-19 pneumonia [Fatal]
  - Off label use [Unknown]
  - Intentional product use issue [Unknown]

NARRATIVE: CASE EVENT DATE: 20200710
